FAERS Safety Report 22023667 (Version 29)
Quarter: 2025Q1

REPORT INFORMATION
  Report Type: Report from Study
  Country: CA (occurrence: CA)
  Receive Date: 20230223
  Receipt Date: 20250203
  Transmission Date: 20250408
  Serious: Yes (Hospitalization, Other)
  Sender: ROCHE
  Company Number: CA-ROCHE-2381919

PATIENT
  Age: 65 Year
  Sex: Female
  Weight: 64.8 kg

DRUGS (48)
  1. AVASTIN [Suspect]
     Active Substance: BEVACIZUMAB
     Indication: Non-small cell lung cancer
     Route: 040
     Dates: start: 20190802, end: 20191025
  2. AVASTIN [Suspect]
     Active Substance: BEVACIZUMAB
     Route: 040
     Dates: start: 20191115, end: 20200731
  3. AVASTIN [Suspect]
     Active Substance: BEVACIZUMAB
     Route: 040
     Dates: start: 20200825, end: 202112
  4. AVASTIN [Suspect]
     Active Substance: BEVACIZUMAB
     Route: 040
     Dates: start: 20211223, end: 20221215
  5. AVASTIN [Suspect]
     Active Substance: BEVACIZUMAB
     Route: 040
     Dates: start: 20230105, end: 20231207
  6. AVASTIN [Suspect]
     Active Substance: BEVACIZUMAB
     Route: 040
     Dates: start: 20231228, end: 20241017
  7. AVASTIN [Suspect]
     Active Substance: BEVACIZUMAB
     Route: 040
  8. AVASTIN [Suspect]
     Active Substance: BEVACIZUMAB
     Route: 040
  9. AVASTIN [Suspect]
     Active Substance: BEVACIZUMAB
     Route: 040
  10. AVASTIN [Suspect]
     Active Substance: BEVACIZUMAB
     Route: 040
  11. AVASTIN [Suspect]
     Active Substance: BEVACIZUMAB
     Route: 040
  12. AVASTIN [Suspect]
     Active Substance: BEVACIZUMAB
     Route: 040
  13. AVASTIN [Suspect]
     Active Substance: BEVACIZUMAB
     Route: 040
  14. AVASTIN [Suspect]
     Active Substance: BEVACIZUMAB
     Route: 040
  15. AVASTIN [Suspect]
     Active Substance: BEVACIZUMAB
     Route: 040
  16. AVASTIN [Suspect]
     Active Substance: BEVACIZUMAB
     Route: 040
  17. AVASTIN [Suspect]
     Active Substance: BEVACIZUMAB
     Route: 040
  18. AVASTIN [Suspect]
     Active Substance: BEVACIZUMAB
     Route: 040
  19. AVASTIN [Suspect]
     Active Substance: BEVACIZUMAB
     Route: 040
  20. AVASTIN [Suspect]
     Active Substance: BEVACIZUMAB
     Route: 040
  21. AVASTIN [Suspect]
     Active Substance: BEVACIZUMAB
     Route: 040
  22. AVASTIN [Suspect]
     Active Substance: BEVACIZUMAB
     Route: 040
  23. AVASTIN [Suspect]
     Active Substance: BEVACIZUMAB
     Route: 040
  24. AVASTIN [Suspect]
     Active Substance: BEVACIZUMAB
     Route: 040
  25. AVASTIN [Suspect]
     Active Substance: BEVACIZUMAB
     Route: 040
  26. AVASTIN [Suspect]
     Active Substance: BEVACIZUMAB
     Route: 040
  27. AVASTIN [Suspect]
     Active Substance: BEVACIZUMAB
     Route: 040
  28. AVASTIN [Suspect]
     Active Substance: BEVACIZUMAB
     Route: 040
  29. AVASTIN [Suspect]
     Active Substance: BEVACIZUMAB
     Route: 040
  30. AVASTIN [Suspect]
     Active Substance: BEVACIZUMAB
     Route: 040
  31. AVASTIN [Suspect]
     Active Substance: BEVACIZUMAB
     Route: 040
  32. AVASTIN [Suspect]
     Active Substance: BEVACIZUMAB
     Route: 040
  33. AVASTIN [Suspect]
     Active Substance: BEVACIZUMAB
     Route: 040
  34. AVASTIN [Suspect]
     Active Substance: BEVACIZUMAB
     Route: 040
  35. AVASTIN [Suspect]
     Active Substance: BEVACIZUMAB
     Route: 040
  36. AVASTIN [Suspect]
     Active Substance: BEVACIZUMAB
     Route: 040
  37. AVASTIN [Suspect]
     Active Substance: BEVACIZUMAB
     Route: 040
  38. AVASTIN [Suspect]
     Active Substance: BEVACIZUMAB
     Route: 040
  39. AVASTIN [Suspect]
     Active Substance: BEVACIZUMAB
     Route: 040
  40. AVASTIN [Suspect]
     Active Substance: BEVACIZUMAB
     Route: 040
  41. AVASTIN [Suspect]
     Active Substance: BEVACIZUMAB
     Route: 040
     Dates: start: 20231228, end: 20241017
  42. AVASTIN [Suspect]
     Active Substance: BEVACIZUMAB
     Route: 040
     Dates: start: 20241107
  43. AVASTIN [Suspect]
     Active Substance: BEVACIZUMAB
     Route: 040
  44. AVASTIN [Suspect]
     Active Substance: BEVACIZUMAB
     Route: 040
  45. METOCLOPRAMIDE [Concomitant]
     Active Substance: METOCLOPRAMIDE
  46. TYLENOL [Concomitant]
     Active Substance: ACETAMINOPHEN
     Indication: Product used for unknown indication
  47. FOLIC ACID [Concomitant]
     Active Substance: FOLIC ACID
     Route: 048
  48. HYDROCHLOROTHIAZIDE [Concomitant]
     Active Substance: HYDROCHLOROTHIAZIDE
     Indication: Hypertension
     Route: 048
     Dates: start: 20200110

REACTIONS (20)
  - Hypertension [Unknown]
  - Supraventricular tachycardia [Unknown]
  - COVID-19 [Unknown]
  - Blood pressure fluctuation [Unknown]
  - Blood pressure systolic increased [Unknown]
  - Blood pressure diastolic abnormal [Unknown]
  - Blood pressure increased [Unknown]
  - Oxygen saturation decreased [Unknown]
  - Blood pressure systolic abnormal [Unknown]
  - Blood pressure diastolic increased [Unknown]
  - Weight decreased [Unknown]
  - Dyspnoea [Unknown]
  - Heart rate increased [Unknown]
  - Respiratory rate increased [Unknown]
  - Pleural effusion [Unknown]
  - Weight increased [Unknown]
  - Heart rate decreased [Unknown]
  - Tooth disorder [Unknown]
  - Decreased appetite [Not Recovered/Not Resolved]
  - Walking aid user [Unknown]

NARRATIVE: CASE EVENT DATE: 20190802
